FAERS Safety Report 19489686 (Version 2)
Quarter: 2021Q3

REPORT INFORMATION
  Report Type: Spontaneous
  Country: TR (occurrence: TR)
  Receive Date: 20210704
  Receipt Date: 20210805
  Transmission Date: 20211014
  Serious: Yes (Other)
  Sender: FDA-Public Use
  Company Number: TR-LUPIN PHARMACEUTICALS INC.-2021-11473

PATIENT
  Sex: Female
  Weight: 3.58 kg

DRUGS (4)
  1. HYDROXYCHLOROQUINE [Suspect]
     Active Substance: HYDROXYCHLOROQUINE
     Indication: COVID-19
     Dosage: UNK (TRANSPLACENTAL AND TRANSMEMMORY ROUTE)
     Route: 063
     Dates: start: 2020
  2. AZITHROMYCIN ANHYDROUS. [Suspect]
     Active Substance: AZITHROMYCIN ANHYDROUS
     Indication: COVID-19
     Dosage: UNK (TRANSPLACENTAL AND TRANSMEMMORY ROUTE)
     Route: 063
     Dates: start: 2020
  3. CEFAZOLIN [Suspect]
     Active Substance: CEFAZOLIN
     Indication: COVID-19
     Dosage: UNK (TRANSPLACENTAL AND TRANSMEMMORY ROUTE)
     Route: 063
     Dates: start: 2020
  4. ENOXAPARIN SODIUM. [Suspect]
     Active Substance: ENOXAPARIN SODIUM
     Indication: COVID-19
     Dosage: UNK (TRANSPLACENTAL AND TRANSMEMMORY ROUTE)
     Route: 063
     Dates: start: 2020

REACTIONS (3)
  - Feeding intolerance [Recovering/Resolving]
  - Vomiting [Recovering/Resolving]
  - Exposure via breast milk [Unknown]

NARRATIVE: CASE EVENT DATE: 2020
